FAERS Safety Report 15805660 (Version 1)
Quarter: 2019Q1

REPORT INFORMATION
  Report Type: Spontaneous
  Country: US (occurrence: US)
  Receive Date: 20190110
  Receipt Date: 20190110
  Transmission Date: 20190417
  Serious: No
  Sender: FDA-Public Use
  Company Number: US-ASTRAZENECA-2018SF67391

PATIENT
  Age: 55 Year
  Sex: Male

DRUGS (1)
  1. BRILINTA [Suspect]
     Active Substance: TICAGRELOR
     Indication: STENT PLACEMENT
     Dosage: 90.0MG UNKNOWN
     Route: 048
     Dates: start: 20181213

REACTIONS (7)
  - Hyperventilation [Unknown]
  - Dyspnoea [Unknown]
  - Syncope [Unknown]
  - Vomiting [Unknown]
  - Agitation [Unknown]
  - Nausea [Unknown]
  - Panic attack [Unknown]

NARRATIVE: CASE EVENT DATE: 20181213
